FAERS Safety Report 12544184 (Version 1)
Quarter: 2016Q3

REPORT INFORMATION
  Report Type: Spontaneous
  Country: US (occurrence: US)
  Receive Date: 20160711
  Receipt Date: 20160711
  Transmission Date: 20161109
  Serious: Yes (Hospitalization, Other)
  Sender: FDA-Public Use
  Company Number: US-ZYDUS-011537

PATIENT
  Age: 69 Year
  Sex: Female

DRUGS (5)
  1. LEVOTHYROXINE. [Concomitant]
     Active Substance: LEVOTHYROXINE
     Indication: HYPOTHYROIDISM
     Route: 065
  2. SERTRALINE [Concomitant]
     Active Substance: SERTRALINE HYDROCHLORIDE
     Indication: ANXIETY
     Route: 065
  3. LANSOPRAZOLE. [Suspect]
     Active Substance: LANSOPRAZOLE
     Indication: PEPTIC ULCER
     Route: 065
  4. TIOTROPIUM/TIOTROPIUM BROMIDE [Concomitant]
     Indication: ASTHMA
     Route: 055
  5. SALBUTAMOL [Concomitant]
     Active Substance: ALBUTEROL
     Indication: ASTHMA
     Route: 055

REACTIONS (11)
  - Tubulointerstitial nephritis [Unknown]
  - Lethargy [Unknown]
  - Decreased appetite [Unknown]
  - Renal impairment [Recovering/Resolving]
  - Malaise [Unknown]
  - Acute kidney injury [Unknown]
  - Weight decreased [Unknown]
  - Abdominal discomfort [Unknown]
  - Cystitis [Unknown]
  - Blood creatinine increased [Recovering/Resolving]
  - Nausea [Unknown]
